FAERS Safety Report 6811042-0 (Version None)
Quarter: 2010Q2

REPORT INFORMATION
  Report Type: 
  Country: None (occurrence: None)
  Receive Date: 20100630
  Receipt Date: 20081109
  Transmission Date: 20101027
  Serious: No
  Sender: FDA-Public Use
  Company Number: US-PFIZER INC-2008094626

PATIENT
  Sex: Female

DRUGS (4)
  1. ESTRING [Suspect]
     Indication: VULVOVAGINAL DRYNESS
     Dates: start: 20081104
  2. ACETYLSALICYLIC ACID [Concomitant]
  3. DILTIAZEM [Concomitant]
  4. ZOCOR [Concomitant]

REACTIONS (1)
  - POLLAKIURIA [None]
